FAERS Safety Report 8135801-X (Version None)
Quarter: 2012Q1

REPORT INFORMATION
  Report Type: 
  Country: None (occurrence: None)
  Receive Date: 20120210
  Receipt Date: 20120202
  Transmission Date: 20120608
  Serious: Yes (Disabling, Other)
  Sender: FDA-Public Use
  Company Number: ACO_29273_2012

PATIENT
  Age: 57 Year
  Sex: Female

DRUGS (7)
  1. METOPROLOL SUCCINATE [Concomitant]
  2. PREMPRO [Concomitant]
  3. AMPYRA [Suspect]
     Indication: PRODUCT USED FOR UNKNOWN INDICATION
     Dosage: 10 MG, BID, ORAL
     Route: 048
     Dates: start: 20120101, end: 20120201
  4. SIMVASTATIN [Concomitant]
  5. NEXIUM [Concomitant]
  6. CITALOPRAM HBR (CITALOPRAM HYDROBROMIDE) [Concomitant]
  7. ASPIRIN [Concomitant]

REACTIONS (3)
  - GAIT DISTURBANCE [None]
  - DYSSTASIA [None]
  - BALANCE DISORDER [None]
